FAERS Safety Report 5701714-3 (Version None)
Quarter: 2008Q2

REPORT INFORMATION
  Report Type: 
  Country: None (occurrence: None)
  Receive Date: 20080409
  Receipt Date: 20080409
  Transmission Date: 20081010
  Serious: Yes (Other)
  Sender: FDA-Public Use
  Company Number: None

PATIENT
  Age: 78 Year
  Sex: Female
  Weight: 58.9676 kg

DRUGS (1)
  1. BONIVA [Suspect]
     Indication: BONE DENSITY DECREASED
     Dosage: 1 PER MONTH PO
     Route: 048
     Dates: start: 20071125, end: 20071125

REACTIONS (7)
  - ARTHRALGIA [None]
  - ASTHENIA [None]
  - CONSTIPATION [None]
  - FATIGUE [None]
  - GAIT DISTURBANCE [None]
  - INFLUENZA [None]
  - QUALITY OF LIFE DECREASED [None]
